FAERS Safety Report 13649442 (Version 1)
Quarter: 2017Q2

REPORT INFORMATION
  Report Type: Spontaneous
  Country: US (occurrence: US)
  Receive Date: 20170614
  Receipt Date: 20170614
  Transmission Date: 20170830
  Serious: Yes (Hospitalization, Other)
  Sender: FDA-Public Use
  Company Number: US-AUROBINDO-AUR-APL-2017-35190

PATIENT
  Age: 60 Year
  Sex: Male

DRUGS (2)
  1. CLOZAPINE TABLET [Suspect]
     Active Substance: CLOZAPINE
     Dosage: 100 MG, ONCE A DAY
  2. CLOZAPINE TABLET [Suspect]
     Active Substance: CLOZAPINE
     Indication: SCHIZOPHRENIA
     Dosage: 125 MG, ONCE A DAY NIGHTLY
     Route: 065
     Dates: start: 201502

REACTIONS (4)
  - Medication error [Recovered/Resolved]
  - Transient ischaemic attack [Recovered/Resolved]
  - Accidental overdose [Recovered/Resolved]
  - Pulmonary embolism [Recovered/Resolved]
